FAERS Safety Report 6645136-X (Version None)
Quarter: 2010Q1

REPORT INFORMATION
  Report Type: 
  Country: None (occurrence: None)
  Receive Date: 20100322
  Receipt Date: 20100317
  Transmission Date: 20100710
  Serious: Yes (Other)
  Sender: FDA-Public Use
  Company Number: US-SANOFI-AVENTIS-2010SA016018

PATIENT
  Age: 65 Year
  Sex: Female

DRUGS (1)
  1. PLAVIX [Suspect]
     Indication: CORONARY ARTERY OCCLUSION
     Route: 048
     Dates: start: 20090101

REACTIONS (2)
  - CARDIOMEGALY [None]
  - HEART VALVE INCOMPETENCE [None]
